FAERS Safety Report 16410241 (Version 1)
Quarter: 2019Q3

REPORT INFORMATION
  Report Type: Spontaneous
  Country: US (occurrence: US)
  Receive Date: 20190607
  Receipt Date: 20190607
  Transmission Date: 20191004
  Serious: Yes (Hospitalization)
  Sender: FDA-Public Use
  Company Number: None

PATIENT
  Age: 18 Year
  Sex: Female

DRUGS (3)
  1. FIRAZYR [Suspect]
     Active Substance: ICATIBANT ACETATE
     Indication: ANGIOEDEMA
     Dosage: ?          OTHER FREQUENCY:AS NEEDED;?
     Route: 058
     Dates: start: 20171025
  2. SERTRALINE [Concomitant]
     Active Substance: SERTRALINE HYDROCHLORIDE
     Dates: start: 20190522
  3. RUCONEST [Suspect]
     Active Substance: HUMAN C1-ESTERASE INHIBITOR
     Indication: ANGIOEDEMA
     Dosage: DOSE: 3200 UNK-UNKNOWN?          OTHER FREQUENCY:EVERY 3-4 DAYS AS?
     Route: 042
     Dates: start: 20190220

REACTIONS (2)
  - Therapy cessation [None]
  - Hospitalisation [None]
